FAERS Safety Report 13901892 (Version 1)
Quarter: 2017Q3

REPORT INFORMATION
  Report Type: Spontaneous
  Country: US (occurrence: US)
  Receive Date: 20170824
  Receipt Date: 20170824
  Transmission Date: 20171127
  Serious: No
  Sender: FDA-Public Use
  Company Number: US-ROCHE-1129672

PATIENT
  Sex: Female

DRUGS (6)
  1. PRILOSEC [Concomitant]
     Active Substance: OMEPRAZOLE MAGNESIUM
  2. HERCEPTIN [Suspect]
     Active Substance: TRASTUZUMAB
     Indication: BREAST CANCER
     Dosage: LODING DOSE
     Route: 065
     Dates: start: 19970103
  3. KEFLEX [Concomitant]
     Active Substance: CEPHALEXIN
  4. HERCEPTIN [Suspect]
     Active Substance: TRASTUZUMAB
     Dosage: MAINTANANCE DOSE
     Route: 065
  5. NAVELBINE [Concomitant]
     Active Substance: VINORELBINE TARTRATE
  6. CIPRO [Concomitant]
     Active Substance: CIPROFLOXACIN HYDROCHLORIDE

REACTIONS (6)
  - Fatigue [Unknown]
  - Peripheral swelling [Unknown]
  - Abdominal pain [Recovered/Resolved]
  - Chest discomfort [Unknown]
  - White blood cell count decreased [Unknown]
  - Cough [Unknown]
